FAERS Safety Report 23225172 (Version 1)
Quarter: 2023Q4

REPORT INFORMATION
  Report Type: Spontaneous
  Country: DE (occurrence: DE)
  Receive Date: 20231124
  Receipt Date: 20231124
  Transmission Date: 20240110
  Serious: Yes (Other)
  Sender: FDA-Public Use
  Company Number: DE-EMBRYOTOX-202207372

PATIENT
  Age: 1 Day
  Sex: Male
  Weight: 3.25 kg

DRUGS (3)
  1. ARIPIPRAZOLE [Suspect]
     Active Substance: ARIPIPRAZOLE
     Indication: Depression
     Dosage: 3 MILLIGRAM, ONCE A DAY
     Route: 064
     Dates: start: 20220522, end: 20230215
  2. VENLAFAXINE [Suspect]
     Active Substance: VENLAFAXINE HYDROCHLORIDE
     Indication: Anxiety disorder
     Dosage: 225 MILLIGRAM, ONCE A DAY
     Route: 064
     Dates: start: 20220522, end: 20230215
  3. DIPHTHERIA AND TETANUS TOXOIDS AND PERTUSSIS VACCINE [Concomitant]
     Active Substance: DIPHTHERIA AND TETANUS TOXOIDS AND PERTUSSIS VACCINE
     Indication: Immunisation
     Dosage: UNK
     Route: 064
     Dates: start: 20230131, end: 20230131

REACTIONS (3)
  - Respiratory disorder neonatal [Recovered/Resolved]
  - Infantile vomiting [Recovered/Resolved]
  - Foetal exposure during pregnancy [Unknown]

NARRATIVE: CASE EVENT DATE: 20230201
